FAERS Safety Report 8246533-1 (Version None)
Quarter: 2012Q1

REPORT INFORMATION
  Report Type: 
  Country: None (occurrence: None)
  Receive Date: 20120330
  Receipt Date: 20120322
  Transmission Date: 20120608
  Serious: Yes (Death)
  Sender: FDA-Public Use
  Company Number: US-BRISTOL-MYERS SQUIBB COMPANY-16423311

PATIENT
  Age: 66 Year
  Sex: Male

DRUGS (1)
  1. YERVOY [Suspect]
     Dosage: 2ND INF ON 08FEB12,3RD INF SCHEDULED  FOR 29FEB2012
     Dates: start: 20120117

REACTIONS (2)
  - RASH [None]
  - DEATH [None]
